FAERS Safety Report 7210686-4 (Version None)
Quarter: 2010Q4

REPORT INFORMATION
  Report Type: 
  Country: None (occurrence: None)
  Receive Date: 20101126
  Receipt Date: 20100928
  Transmission Date: 20110411
  Serious: No
  Sender: FDA-Public Use
  Company Number: 315976

PATIENT
  Age: 63 Year
  Sex: Female
  Weight: 52.2 kg

DRUGS (2)
  1. VICTOZA [Suspect]
     Indication: TYPE 2 DIABETES MELLITUS
  2. LANTUS [Suspect]
     Dosage: 10 U, QD ; 12 U, QD, SUBCUTANEOUS
     Route: 058
     Dates: start: 20100710

REACTIONS (5)
  - BLOOD GLUCOSE DECREASED [None]
  - BLOOD GLUCOSE INCREASED [None]
  - DECREASED APPETITE [None]
  - MALAISE [None]
  - NAUSEA [None]
